FAERS Safety Report 4479346-7 (Version None)
Quarter: 2004Q4

REPORT INFORMATION
  Report Type: 
  Country: None (occurrence: None)
  Receive Date: 20041019
  Receipt Date: 20041019
  Transmission Date: 20050328
  Serious: Yes (Other)
  Sender: FDA-Public Use
  Company Number: None

PATIENT
  Age: 36 Year
  Sex: Female
  Weight: 68.4932 kg

DRUGS (1)
  1. ORTHO TRI-CYCLEN [Suspect]
     Indication: PREMENSTRUAL SYNDROME
     Dosage: 28 1 TAB DAILY

REACTIONS (2)
  - METRORRHAGIA [None]
  - MUSCLE CRAMP [None]
